FAERS Safety Report 25302299 (Version 1)
Quarter: 2025Q2

REPORT INFORMATION
  Report Type: Spontaneous
  Country: US (occurrence: None)
  Receive Date: 20250512
  Receipt Date: 20250512
  Transmission Date: 20250716
  Serious: Yes (Other)
  Sender: FDA-CTU
  Company Number: None

PATIENT
  Age: 45 Year
  Sex: Male
  Weight: 92.9 kg

DRUGS (2)
  1. VANCOMYCIN [Suspect]
     Active Substance: VANCOMYCIN
     Indication: Osteomyelitis
     Route: 041
     Dates: start: 20250502, end: 20250502
  2. CEFEPIME [Concomitant]
     Active Substance: CEFEPIME HYDROCHLORIDE
     Dates: start: 20250502

REACTIONS (4)
  - Dialysis [None]
  - Pruritus [None]
  - Drug hypersensitivity [None]
  - Blood pressure systolic increased [None]

NARRATIVE: CASE EVENT DATE: 20250502
